FAERS Safety Report 10396750 (Version 1)
Quarter: 2014Q3

REPORT INFORMATION
  Report Type: Spontaneous
  Country: US (occurrence: US)
  Receive Date: 20140820
  Receipt Date: 20140820
  Transmission Date: 20150326
  Serious: Yes (Death)
  Sender: FDA-Public Use
  Company Number: US-PFIZER INC-2014229405

PATIENT
  Age: 69 Year
  Sex: Male
  Weight: 66 kg

DRUGS (1)
  1. RAPAMUNE [Suspect]
     Active Substance: SIROLIMUS
     Indication: HEART TRANSPLANT
     Dosage: 01 MG, DAILY
     Dates: end: 201407

REACTIONS (4)
  - Off label use [Unknown]
  - Dysphagia [Unknown]
  - Cardiac disorder [Fatal]
  - Dyspnoea [Fatal]

NARRATIVE: CASE EVENT DATE: 201205
